FAERS Safety Report 7544473-4 (Version None)
Quarter: 2011Q2

REPORT INFORMATION
  Report Type: 
  Country: None (occurrence: None)
  Receive Date: 20110613
  Receipt Date: 20110427
  Transmission Date: 20111010
  Serious: Yes (Hospitalization, Other)
  Sender: FDA-Public Use
  Company Number: PHHY2011JP28426

PATIENT
  Age: 68 Year
  Sex: Male

DRUGS (3)
  1. TEGRETOL [Suspect]
     Dosage: 800 MG DAILY
     Route: 048
     Dates: end: 20110309
  2. AMAZOLON [Concomitant]
     Dosage: 100 MG, UNK
     Route: 048
  3. FAMOGAST [Concomitant]
     Dosage: 10 MG, UNK
     Route: 048

REACTIONS (2)
  - LUNG DISORDER [None]
  - RESPIRATORY FAILURE [None]
